FAERS Safety Report 11286802 (Version 1)
Quarter: 2015Q3

REPORT INFORMATION
  Report Type: Spontaneous
  Country: US (occurrence: None)
  Receive Date: 20150720
  Receipt Date: 20150720
  Transmission Date: 20151125
  Serious: Yes (Other)
  Sender: FDA-Public Use
  Company Number: None

PATIENT
  Age: 64 Year
  Sex: Male
  Weight: 61.24 kg

DRUGS (6)
  1. METOPROLOL TARTRATE. [Concomitant]
     Active Substance: METOPROLOL TARTRATE
  2. ASPIRIN. [Concomitant]
     Active Substance: ASPIRIN
  3. ATORVASTATIN [Suspect]
     Active Substance: ATORVASTATIN
     Indication: CARDIAC FAILURE
     Dosage: 30 PILLS ONCE DAILY TAKEN BY MOUTH
     Route: 048
     Dates: start: 20150618, end: 20150717
  4. LOSARTAN. [Suspect]
     Active Substance: LOSARTAN
     Indication: HYPERTENSION
     Dosage: 30 PILLS ONCE DAILY TAKEN BY MOUTH
     Route: 048
     Dates: start: 20150618, end: 20150717
  5. MELATONIN [Concomitant]
     Active Substance: MELATONIN
  6. CENTRUM SILVER MULTIPLE VITAMINS+MINERALS [Concomitant]

REACTIONS (4)
  - Neck pain [None]
  - Cough [None]
  - Headache [None]
  - Product quality issue [None]

NARRATIVE: CASE EVENT DATE: 20150717
